FAERS Safety Report 5200442-0 (Version None)
Quarter: 2007Q1

REPORT INFORMATION
  Report Type: 
  Country: None (occurrence: None)
  Receive Date: 20070105
  Receipt Date: 20061227
  Transmission Date: 20070707
  Serious: Yes (Hospitalization)
  Sender: FDA-Public Use
  Company Number: US-SHR-US-2006-006965

PATIENT
  Age: 61 Year
  Sex: Female
  Weight: 131.52 kg

DRUGS (13)
  1. BETASERON [Suspect]
     Indication: RELAPSING-REMITTING MULTIPLE SCLEROSIS
     Dosage: 8 MIU, EVERY 2D
     Route: 058
     Dates: start: 20050104, end: 20060501
  2. OXYGEN [Concomitant]
     Route: 055
  3. REBIF [Concomitant]
     Dosage: 44 A?G, 5X/WEEK
     Route: 058
     Dates: start: 20060601
  4. LASIX [Concomitant]
     Dosage: 5 MG/D, UNK
     Route: 048
     Dates: start: 20051201
  5. NEURONTIN [Concomitant]
     Dosage: 300 MG, 3X/DAY
     Route: 048
     Dates: start: 20040701
  6. CORGARD [Concomitant]
     Dosage: 80 MG/D, UNK
     Route: 048
     Dates: start: 19860101
  7. POTASSIUM ACETATE [Concomitant]
     Dosage: 200 MG/D, UNK
     Route: 048
  8. ASPIRIN [Concomitant]
     Dosage: 81 MG/D, UNK
     Route: 048
  9. ALEVE [Concomitant]
     Dosage: 200 MG, 2X/DAY
     Route: 048
  10. AMBIEN [Concomitant]
     Dosage: 10 MG/D, UNK
     Route: 048
  11. ENALAPRIL MALEATE [Concomitant]
     Dosage: 20 MG, 2X/DAY
     Route: 048
  12. LEVOXYL [Concomitant]
     Indication: THYROID DISORDER
  13. KADIAN [Concomitant]
     Dosage: 50 MG, UNK

REACTIONS (1)
  - PULMONARY HYPERTENSION [None]
